FAERS Safety Report 20529559 (Version 1)
Quarter: 2022Q1

REPORT INFORMATION
  Report Type: Spontaneous
  Country: US (occurrence: US)
  Receive Date: 20220301
  Receipt Date: 20220301
  Transmission Date: 20220423
  Serious: No
  Sender: FDA-Public Use
  Company Number: US-AMGEN-USASL2022035331

PATIENT
  Sex: Female

DRUGS (8)
  1. OTEZLA [Suspect]
     Active Substance: APREMILAST
     Indication: Product used for unknown indication
     Dosage: UNK
     Route: 065
  2. CIALIS [Concomitant]
     Active Substance: TADALAFIL
  3. HUMIRA [Concomitant]
     Active Substance: ADALIMUMAB
  4. JANUVIA [Concomitant]
     Active Substance: SITAGLIPTIN PHOSPHATE
  5. LIPITOR [Concomitant]
     Active Substance: ATORVASTATIN CALCIUM
  6. NIZORAL [Concomitant]
     Active Substance: KETOCONAZOLE
  7. PERCOCET [Concomitant]
     Active Substance: ACETAMINOPHEN\OXYCODONE HYDROCHLORIDE
  8. TEMOVATE [Concomitant]
     Active Substance: CLOBETASOL PROPIONATE

REACTIONS (2)
  - Drug ineffective [Unknown]
  - Condition aggravated [Unknown]
